FAERS Safety Report 16100481 (Version 2)
Quarter: 2019Q4

REPORT INFORMATION
  Report Type: Report from Study
  Country: FR (occurrence: FR)
  Receive Date: 20190321
  Receipt Date: 20191219
  Transmission Date: 20200122
  Serious: Yes (Life-Threatening, Hospitalization, Other)
  Sender: FDA-Public Use
  Company Number: FR-BAUSCH-BL-2019-008386

PATIENT
  Age: 67 Year
  Sex: Female
  Weight: 64 kg

DRUGS (13)
  1. JANUVIA [Suspect]
     Active Substance: SITAGLIPTIN PHOSPHATE
     Indication: TYPE 2 DIABETES MELLITUS
     Route: 065
     Dates: end: 20190307
  2. KARDEGIC [Concomitant]
     Active Substance: ASPIRIN DL-LYSINE
     Indication: PRODUCT USED FOR UNKNOWN INDICATION
     Route: 065
  3. METFORMINE ARROW [Suspect]
     Active Substance: METFORMIN HYDROCHLORIDE
     Indication: TYPE 2 DIABETES MELLITUS
     Route: 048
     Dates: end: 20190307
  4. VOTRIENT [Suspect]
     Active Substance: PAZOPANIB HYDROCHLORIDE
     Route: 048
     Dates: start: 20190108
  5. LANTUS [Suspect]
     Active Substance: INSULIN GLARGINE
     Indication: TYPE 2 DIABETES MELLITUS
     Route: 065
     Dates: end: 20190307
  6. ACARBOSE. [Suspect]
     Active Substance: ACARBOSE
     Indication: TYPE 2 DIABETES MELLITUS
     Route: 065
     Dates: end: 20190307
  7. VOTRIENT [Suspect]
     Active Substance: PAZOPANIB HYDROCHLORIDE
     Indication: RENAL CANCER METASTATIC
     Route: 048
     Dates: start: 20181213
  8. RILMENIDINE [Concomitant]
     Active Substance: RILMENIDINE
     Indication: PRODUCT USED FOR UNKNOWN INDICATION
     Route: 065
  9. RILMENIDINE BIOGARAN [Suspect]
     Active Substance: RILMENIDINE
     Indication: HYPERTENSION
     Dosage: 1 UG/ LITER
     Route: 048
     Dates: end: 20190307
  10. INEGY [Suspect]
     Active Substance: EZETIMIBE\SIMVASTATIN
     Indication: DYSLIPIDAEMIA
     Dosage: (10 MG/ 20 MG) DAILY
     Route: 065
     Dates: end: 20190307
  11. PERINDOPRIL/INDAPAMIDE SANDOZ [Suspect]
     Active Substance: INDAPAMIDE\PERINDOPRIL
     Indication: HYPERTENSION
     Route: 065
     Dates: end: 20190307
  12. BISOPROLOL [Suspect]
     Active Substance: BISOPROLOL
     Indication: HYPERTENSION
     Route: 065
     Dates: end: 20190307
  13. METFORMINE ARROW [Suspect]
     Active Substance: METFORMIN HYDROCHLORIDE
     Route: 048
     Dates: end: 20190307

REACTIONS (32)
  - Acute kidney injury [Recovering/Resolving]
  - Hyperkalaemia [Recovered/Resolved]
  - Hypothyroidism [Recovering/Resolving]
  - Diarrhoea [Recovering/Resolving]
  - Metabolic acidosis [Unknown]
  - Anaemia [Recovered/Resolved]
  - Coma [Recovered/Resolved]
  - Shock haemorrhagic [Recovered/Resolved]
  - Staphylococcal infection [Recovered/Resolved]
  - Blood pressure systolic decreased [Unknown]
  - Pruritus [Unknown]
  - Vomiting [Recovered/Resolved]
  - Blood pressure systolic increased [Unknown]
  - Malnutrition [Recovered/Resolved]
  - Peripheral artery haematoma [Unknown]
  - Hyperleukocytosis [Recovered/Resolved]
  - Shock [Recovered/Resolved]
  - Pneumonia [Recovering/Resolving]
  - Staphylococcal sepsis [Recovering/Resolving]
  - Cell death [Recovered/Resolved]
  - Intestinal transit time abnormal [Unknown]
  - Decreased appetite [Unknown]
  - Oedema peripheral [Unknown]
  - Dehydration [Recovered/Resolved]
  - General physical health deterioration [Unknown]
  - Urinary incontinence [Unknown]
  - Vitamin D deficiency [Unknown]
  - Lactic acidosis [Recovering/Resolving]
  - Heart rate decreased [Unknown]
  - Haematoma [Unknown]
  - Accidental overdose [Unknown]
  - Constipation [Unknown]

NARRATIVE: CASE EVENT DATE: 20190129
